FAERS Safety Report 5406812-X (Version None)
Quarter: 2007Q3

REPORT INFORMATION
  Report Type: 
  Country: None (occurrence: None)
  Receive Date: 20070807
  Receipt Date: 20070726
  Transmission Date: 20080115
  Serious: Yes (Other)
  Sender: FDA-Public Use
  Company Number: US-ELI_LILLY_AND_COMPANY-US200707006602

PATIENT
  Age: 72 Year
  Sex: Male

DRUGS (1)
  1. ZYPREXA [Suspect]
     Dosage: UNK MG, UNK
     Route: 048

REACTIONS (2)
  - ATRIAL FIBRILLATION [None]
  - VENTRICULAR TACHYCARDIA [None]
